FAERS Safety Report 17071859 (Version 1)
Quarter: 2019Q4

REPORT INFORMATION
  Report Type: Spontaneous
  Country: CA (occurrence: CA)
  Receive Date: 20191125
  Receipt Date: 20191125
  Transmission Date: 20200122
  Serious: Yes (Other)
  Sender: FDA-Public Use
  Company Number: CA-PFIZER INC-2019505322

PATIENT
  Age: 44 Year
  Sex: Female

DRUGS (11)
  1. CICLOSPORIN [Suspect]
     Active Substance: CYCLOSPORINE
     Route: 065
  2. PREDNISONE. [Suspect]
     Active Substance: PREDNISONE
     Dosage: UNK
     Route: 065
  3. DOXEPIN [Suspect]
     Active Substance: DOXEPIN
     Dosage: 10 MG, UNK
  4. RANITIDINE. [Suspect]
     Active Substance: RANITIDINE
     Route: 065
  5. KETOTIFEN [Suspect]
     Active Substance: KETOTIFEN
     Dosage: 5 MG, UNK
     Route: 048
  6. SULFASALAZINE. [Suspect]
     Active Substance: SULFASALAZINE
     Route: 065
  7. KETOTIFEN [Suspect]
     Active Substance: KETOTIFEN
     Dosage: UNK UNK, 2X/DAY
     Route: 048
  8. PREDNISONE. [Suspect]
     Active Substance: PREDNISONE
     Dosage: 50 MG, UNK
     Route: 065
  9. MONTELUKAST SODIUM. [Suspect]
     Active Substance: MONTELUKAST SODIUM
     Route: 065
  10. RUPATADINE FUMARATE [Suspect]
     Active Substance: RUPATADINE FUMARATE
  11. OMALIZUMAB. [Suspect]
     Active Substance: OMALIZUMAB
     Indication: CHRONIC SPONTANEOUS URTICARIA
     Dosage: 300 MG, MONTHLY
     Route: 058

REACTIONS (7)
  - Drug ineffective [Unknown]
  - Skin plaque [Unknown]
  - Cushingoid [Unknown]
  - Osteoporotic fracture [Unknown]
  - Alopecia [Unknown]
  - Dizziness [Unknown]
  - Lipohypertrophy [Unknown]
